FAERS Safety Report 8056578-2 (Version None)
Quarter: 2012Q1

REPORT INFORMATION
  Report Type: 
  Country: None (occurrence: None)
  Receive Date: 20120119
  Receipt Date: 20110902
  Transmission Date: 20120608
  Serious: Yes (Death, Other)
  Sender: FDA-Public Use
  Company Number: PHHY2011AU61309

PATIENT
  Sex: Female

DRUGS (5)
  1. CLOZAPINE [Suspect]
     Indication: DEMENTIA
     Dosage: 12.5 MG, DAILY
     Route: 048
     Dates: start: 20021122
  2. CITALOPRAM [Concomitant]
     Dosage: 20 MG,
  3. CLOZAPINE [Suspect]
     Dosage: 500 MG, DAILY
     Route: 048
  4. DIAZEPAM [Concomitant]
     Dosage: 2 MG,
  5. DIAMICRON [Concomitant]
     Dosage: 160 MG, BID

REACTIONS (4)
  - COMA [None]
  - MYOCARDIAL INFARCTION [None]
  - CARDIAC ARREST [None]
  - ATRIOVENTRICULAR BLOCK [None]
